FAERS Safety Report 17424672 (Version 2)
Quarter: 2020Q1

REPORT INFORMATION
  Report Type: Report from Study
  Country: ES (occurrence: ES)
  Receive Date: 20200217
  Receipt Date: 20200221
  Transmission Date: 20200409
  Serious: Yes (Other)
  Sender: FDA-Public Use
  Company Number: ES-GLAXOSMITHKLINE-ES2020018319

PATIENT
  Age: 1 Year
  Sex: Male

DRUGS (8)
  1. PNEUMOCOCCAL VACCINE POLYVALENT NOS [Suspect]
     Active Substance: PNEUMOCOCCAL VACCINE POLYVALENT
     Indication: PROPHYLAXIS
     Route: 030
     Dates: start: 20191202
  2. BLINDED RSV CHAD155 VACCINE (1.5X10E10 VP) [Suspect]
     Active Substance: INVESTIGATIONAL PRODUCT
     Indication: PROPHYLAXIS
     Route: 030
     Dates: start: 20191202
  3. BLINDED VACCINE PLACEBO [Suspect]
     Active Substance: INVESTIGATIONAL PRODUCT
     Indication: PROPHYLAXIS
     Route: 030
     Dates: start: 20191202
  4. MENINGOCOCCAL POLYSACCHARIDE VACCINE, GROUPS A, C, Y, W135 COMBINED NOS [Suspect]
     Active Substance: MENINGOCOCCAL POLYSACCHARIDE VACCINE, GROUPS A, C, Y,W135 COMBINED
     Indication: PROPHYLAXIS
     Route: 030
     Dates: start: 20191202
  5. MENINGOCOCCAL POLYSACCHARIDE VACCINE, GROUPS A, C, Y, W135 COMBINED NOS [Suspect]
     Active Substance: MENINGOCOCCAL POLYSACCHARIDE VACCINE, GROUPS A, C, Y,W135 COMBINED
     Indication: PROPHYLAXIS
     Route: 030
     Dates: start: 20191202
  6. BLINDED RSV CHAD155 VACCINE (5X10E10 VP) [Suspect]
     Active Substance: INVESTIGATIONAL PRODUCT
     Indication: PROPHYLAXIS
     Route: 030
     Dates: start: 20191202
  7. BLINDED MENINGOCOCCAL B RECOM VACCINE + ALOH + OMV [Suspect]
     Active Substance: MENINGOCOCCAL GROUP B VACCINE
     Indication: PROPHYLAXIS
     Route: 030
     Dates: start: 20191202
  8. VENTOLIN [Concomitant]
     Active Substance: ALBUTEROL SULFATE
     Indication: BRONCHIOLITIS
     Dosage: 6 PUFF(S), 1D
     Route: 055
     Dates: start: 20200123, end: 20200128

REACTIONS (1)
  - Respiratory syncytial virus bronchiolitis [Recovering/Resolving]

NARRATIVE: CASE EVENT DATE: 20200124
